FAERS Safety Report 17959254 (Version 6)
Quarter: 2020Q4

REPORT INFORMATION
  Report Type: Report from Study
  Country: None (occurrence: NL)
  Receive Date: 20200630
  Receipt Date: 20201130
  Transmission Date: 20210113
  Serious: Yes (Life-Threatening, Other)
  Sender: FDA-Public Use
  Company Number: NL-ABBVIE-19K-114-2979090-00

PATIENT
  Age: 69 Year
  Sex: Female

DRUGS (16)
  1. DUODOPA [Suspect]
     Active Substance: CARBIDOPA\LEVODOPA
     Dosage: MD: 7.0, CD: 5.4, ED: 3.0, CND: 4.2, END: 3.0; 24 HOUR ADMINISTRATION
     Route: 050
  2. MACROGOL [Concomitant]
     Active Substance: POLYETHYLENE GLYCOLS
     Indication: ABNORMAL FAECES
  3. DUODOPA [Suspect]
     Active Substance: CARBIDOPA\LEVODOPA
     Dosage: MD 7.0 CD 5.2 ED 3.0 CDN 3.8
     Route: 050
     Dates: start: 2019, end: 2019
  4. DUODOPA [Suspect]
     Active Substance: CARBIDOPA\LEVODOPA
     Dosage: MDD: 7.0 CDD: 4.9; EDD: 3.0 NIGHT-PUMP: MDN: 0.0;?CDN: 3.5; EDN: 3.0
     Route: 050
     Dates: start: 2019, end: 2019
  5. DUODOPA [Suspect]
     Active Substance: CARBIDOPA\LEVODOPA
     Indication: PARKINSON^S DISEASE
     Route: 050
  6. DUODOPA [Suspect]
     Active Substance: CARBIDOPA\LEVODOPA
     Dosage: MD: 10. 0 CD: 4.0 ED: 3.0
     Route: 050
     Dates: start: 20191021, end: 201910
  7. DUODOPA [Suspect]
     Active Substance: CARBIDOPA\LEVODOPA
     Dosage: MD: 7.0, CD: 5.2, ED: 3.0, CND: 4.0, END: 3.0; 24 HOUR?ADMINISTRATION
     Route: 050
     Dates: start: 2019
  8. DUODOPA [Suspect]
     Active Substance: CARBIDOPA\LEVODOPA
     Dosage: MD: 7.0, CD: 5.2, ED: 3.2, CND: 4.0, END: 3.0;
     Route: 050
  9. DUODOPA [Suspect]
     Active Substance: CARBIDOPA\LEVODOPA
     Dosage: MD: 7.0 ML CDD: 5.4 ML.H EDD: 3.2 ML EDN: 3.0 ML CDN: 4.2 ML
     Route: 050
  10. DUODOPA [Suspect]
     Active Substance: CARBIDOPA\LEVODOPA
     Indication: MULTIPLE SYSTEM ATROPHY
     Dosage: MORNING DOSE INCREASED 8 CONTINUOUS DOSE INCREASED 3.4. EXTRA DOSE INCREASED 3
     Route: 050
  11. DUODOPA [Suspect]
     Active Substance: CARBIDOPA\LEVODOPA
     Dosage: INCREASED THE NIGHTLY CONTINUOUS DOSE BY 0.3 TO 2.6
     Route: 050
     Dates: start: 20191021, end: 201911
  12. DUODOPA [Suspect]
     Active Substance: CARBIDOPA\LEVODOPA
     Dosage: CDN INCREASED FROM 3.2 TO 3.5
     Route: 050
     Dates: start: 201911, end: 2019
  13. DUODOPA [Suspect]
     Active Substance: CARBIDOPA\LEVODOPA
     Dosage: MD 7.0 CD 5.2 ED 3.0 EDN 3.8
     Route: 050
     Dates: start: 2019, end: 2019
  14. NUTRIDRINK COMPACT [Concomitant]
     Indication: PRODUCT USED FOR UNKNOWN INDICATION
     Dosage: 1 TO 2 BOTTLES
  15. DUODOPA [Suspect]
     Active Substance: CARBIDOPA\LEVODOPA
     Dosage: MD: 7.0, CD: 5.2, ED: 3.0, CND: 4.2, END: 3.0;
     Route: 050
  16. DUODOPA [Suspect]
     Active Substance: CARBIDOPA\LEVODOPA
     Dosage: MD 7.0 ML; CD 5.6 ML/H; ED 3.2 ML
     Route: 050

REACTIONS (81)
  - Terminal state [Not Recovered/Not Resolved]
  - Musculoskeletal disorder [Not Recovered/Not Resolved]
  - Emotional disorder [Not Recovered/Not Resolved]
  - Fluid intake reduced [Not Recovered/Not Resolved]
  - Orthostatic hypotension [Not Recovered/Not Resolved]
  - Hyperkinesia [Recovered/Resolved]
  - On and off phenomenon [Not Recovered/Not Resolved]
  - Paraesthesia [Not Recovered/Not Resolved]
  - Dysphagia [Recovered/Resolved]
  - Choking [Not Recovered/Not Resolved]
  - Anaesthesia oral [Not Recovered/Not Resolved]
  - Hypoaesthesia [Not Recovered/Not Resolved]
  - Unevaluable event [Not Recovered/Not Resolved]
  - Abnormal faeces [Not Recovered/Not Resolved]
  - Device issue [Unknown]
  - Hypoacusis [Unknown]
  - Muscle tightness [Not Recovered/Not Resolved]
  - Faeces hard [Recovered/Resolved]
  - Tremor [Not Recovered/Not Resolved]
  - Dysphagia [Not Recovered/Not Resolved]
  - Device connection issue [Unknown]
  - Inappropriate schedule of product administration [Unknown]
  - Bone density increased [Not Recovered/Not Resolved]
  - Muscle twitching [Not Recovered/Not Resolved]
  - General physical health deterioration [Not Recovered/Not Resolved]
  - Hypophagia [Not Recovered/Not Resolved]
  - Malaise [Unknown]
  - Nausea [Recovered/Resolved]
  - Fall [Not Recovered/Not Resolved]
  - Fibroma [Recovered/Resolved]
  - Underdose [Recovered/Resolved]
  - Oedema peripheral [Not Recovered/Not Resolved]
  - Mucous stools [Recovered/Resolved]
  - Fatigue [Not Recovered/Not Resolved]
  - Stoma site inflammation [Not Recovered/Not Resolved]
  - Peripheral coldness [Not Recovered/Not Resolved]
  - Decreased appetite [Unknown]
  - Malaise [Not Recovered/Not Resolved]
  - Feeling abnormal [Recovered/Resolved]
  - Speech disorder [Recovered/Resolved]
  - Asthenia [Not Recovered/Not Resolved]
  - Posture abnormal [Not Recovered/Not Resolved]
  - Feeling abnormal [Not Recovered/Not Resolved]
  - Dizziness [Not Recovered/Not Resolved]
  - Musculoskeletal stiffness [Not Recovered/Not Resolved]
  - Hypotension [Not Recovered/Not Resolved]
  - Multiple system atrophy [Not Recovered/Not Resolved]
  - Dysgeusia [Not Recovered/Not Resolved]
  - Urinary incontinence [Not Recovered/Not Resolved]
  - Diplopia [Not Recovered/Not Resolved]
  - Salivary hypersecretion [Not Recovered/Not Resolved]
  - Hypoacusis [Not Recovered/Not Resolved]
  - Staring [Not Recovered/Not Resolved]
  - Mobility decreased [Recovered/Resolved]
  - Bowel movement irregularity [Not Recovered/Not Resolved]
  - Vision blurred [Not Recovered/Not Resolved]
  - Urine osmolarity increased [Not Recovered/Not Resolved]
  - Skin discolouration [Not Recovered/Not Resolved]
  - Balance disorder [Unknown]
  - Vascular occlusion [Not Recovered/Not Resolved]
  - Unresponsive to stimuli [Not Recovered/Not Resolved]
  - Acquired claw toe [Not Recovered/Not Resolved]
  - Muscle spasms [Not Recovered/Not Resolved]
  - Head discomfort [Unknown]
  - Freezing phenomenon [Not Recovered/Not Resolved]
  - Posture abnormal [Recovered/Resolved]
  - Fluid intake reduced [Not Recovered/Not Resolved]
  - Speech disorder [Not Recovered/Not Resolved]
  - Dyschezia [Unknown]
  - Dysstasia [Not Recovered/Not Resolved]
  - Infrequent bowel movements [Not Recovered/Not Resolved]
  - Reduced facial expression [Not Recovered/Not Resolved]
  - Therapeutic product effect variable [Not Recovered/Not Resolved]
  - Dizziness [Recovered/Resolved]
  - Muscle rigidity [Not Recovered/Not Resolved]
  - Myalgia [Unknown]
  - Medical device discomfort [Unknown]
  - Peripheral swelling [Not Recovered/Not Resolved]
  - Defaecation urgency [Not Recovered/Not Resolved]
  - Incorrect dose administered [Not Recovered/Not Resolved]
  - Muscle strain [Unknown]

NARRATIVE: CASE EVENT DATE: 2020
